FAERS Safety Report 7388266-X (Version None)
Quarter: 2011Q2

REPORT INFORMATION
  Report Type: 
  Country: None (occurrence: None)
  Receive Date: 20110401
  Receipt Date: 20101018
  Transmission Date: 20111010
  Serious: Yes (Hospitalization, Other)
  Sender: FDA-Public Use
  Company Number: US-BAYER-201013298NA

PATIENT
  Sex: Female
  Weight: 87.273 kg

DRUGS (12)
  1. VICODIN [Concomitant]
     Indication: PAIN
     Dosage: 5-500 MG, ONE TABLET OF THE DRUG WAS TAKEN EVERY 4-6 HOURS
     Route: 048
     Dates: start: 20090220, end: 20090224
  2. TRAMADOL [Concomitant]
     Route: 048
     Dates: start: 20090220, end: 20090223
  3. METHYLPREDNISOLONE [Concomitant]
     Dosage: METHYLPRED 4 MG PAK AS DIRECTED
  4. PROMETHAZINE [Concomitant]
     Indication: NAUSEA
     Route: 048
     Dates: start: 20100125, end: 20100130
  5. KEFLEX [Concomitant]
     Route: 048
     Dates: start: 20090220, end: 20090301
  6. IBUPROFEN [Concomitant]
     Dosage: DRUG WAS TAKEN FOR 20 DAYS
     Dates: start: 20090101
  7. AMANTADINE HCL [Concomitant]
     Route: 048
     Dates: start: 20091007, end: 20091010
  8. TAMIFLU [Concomitant]
     Route: 048
     Dates: start: 20091007, end: 20091011
  9. VERAMYST [Concomitant]
     Dosage: DRUG WAS USED FOR 30 DAYS
     Route: 045
     Dates: start: 20090101
  10. YAZ [Suspect]
     Indication: PRODUCT USED FOR UNKNOWN INDICATION
     Route: 048
     Dates: start: 20081114, end: 20100112
  11. AZITHROMYCIN [Concomitant]
     Dates: start: 20100125, end: 20100129
  12. NASACORT [Concomitant]
     Dates: start: 20100125, end: 20100223

REACTIONS (5)
  - CHOLECYSTITIS [None]
  - ABDOMINAL PAIN [None]
  - CHOLELITHIASIS [None]
  - BILIARY COLIC [None]
  - GALLBLADDER CHOLESTEROLOSIS [None]
